FAERS Safety Report 6880276-1 (Version None)
Quarter: 2010Q2

REPORT INFORMATION
  Report Type: 
  Country: None (occurrence: None)
  Receive Date: 20100630
  Receipt Date: 20090514
  Transmission Date: 20101027
  Serious: Yes (Other)
  Sender: FDA-Public Use
  Company Number: 2009190621

PATIENT
  Sex: Male

DRUGS (1)
  1. ZITHROMAX [Suspect]
     Indication: STREPTOCOCCAL INFECTION
     Dates: start: 20090301, end: 20090301

REACTIONS (1)
  - HYPERSENSITIVITY [None]
